FAERS Safety Report 9435878 (Version 1)
Quarter: 2013Q3

REPORT INFORMATION
  Report Type: Spontaneous
  Country: PT (occurrence: None)
  Receive Date: 20130801
  Receipt Date: 20130801
  Transmission Date: 20140515
  Serious: Yes (Death, Hospitalization, Other)
  Sender: FDA-Public Use
  Company Number: None

PATIENT
  Age: 56 Year
  Sex: Male

DRUGS (2)
  1. CUBICIN [Suspect]
     Indication: ENTEROCOCCAL INFECTION
  2. CUBICIN [Suspect]
     Indication: OFF LABEL USE

REACTIONS (5)
  - Septic shock [None]
  - Malignant neoplasm progression [None]
  - Drug ineffective [None]
  - Enterococcal bacteraemia [None]
  - Off label use [None]
